FAERS Safety Report 24907912 (Version 1)
Quarter: 2025Q1

REPORT INFORMATION
  Report Type: Report from Study
  Country: US (occurrence: US)
  Receive Date: 20250131
  Receipt Date: 20250131
  Transmission Date: 20250408
  Serious: No
  Sender: HRA PHARMA
  Company Number: US-ORG100014127-2024000176

PATIENT
  Age: 53 Year
  Sex: Female

DRUGS (35)
  1. METOPIRONE [Suspect]
     Active Substance: METYRAPONE
     Indication: Adrenal gland cancer
     Dosage: WITH MILK OR YOGURT
     Dates: start: 20240618
  2. LYSODREN [Concomitant]
     Active Substance: MITOTANE
     Indication: Adrenal gland cancer
     Dosage: TITRATE TO MAX TOLERATED DOSE. TARGET LEVEL 14 - 20 MCG/L
     Route: 048
     Dates: start: 20240525
  3. ADACEL TDAP [Concomitant]
     Active Substance: TETANUS TOXOID, REDUCED DIPHTHERIA TOXOID AND ACELLULAR PERTUSSIS VACCINE ADSORBED, TDAP
     Indication: Product used for unknown indication
  4. AMLODIPINE TAB 5MG [Concomitant]
     Indication: Product used for unknown indication
  5. ACETAMINOPHEN\CODEINE PHOSPHATE [Concomitant]
     Active Substance: ACETAMINOPHEN\CODEINE PHOSPHATE
     Indication: Product used for unknown indication
  6. DEXAMETHASONE [Concomitant]
     Active Substance: DEXAMETHASONE
     Indication: Product used for unknown indication
  7. ERGOCALCIFER CAP 50000UNT [Concomitant]
     Indication: Product used for unknown indication
  8. FARXIGA [Concomitant]
     Active Substance: DAPAGLIFLOZIN PROPANEDIOL
     Indication: Product used for unknown indication
  9. FLUCONAZOLE TAB 150MG [Concomitant]
     Indication: Product used for unknown indication
  10. FLUDROCORT TAB 0.1MG [Concomitant]
     Indication: Product used for unknown indication
  11. HYDROCORT TAB 20MG [Concomitant]
     Indication: Product used for unknown indication
  12. HYDROXYCHLOROQUINE [Concomitant]
     Active Substance: HYDROXYCHLOROQUINE
     Indication: Product used for unknown indication
  13. IBUPROFEN TAB 400MG; [Concomitant]
     Indication: Product used for unknown indication
  14. KLOR-CON M20 TAB 20MEQ ER [Concomitant]
     Indication: Product used for unknown indication
  15. LISINOPRIL [Concomitant]
     Active Substance: LISINOPRIL
     Indication: Product used for unknown indication
  16. LOSARTAN/HCT TAB 100-12.5 [Concomitant]
     Indication: Product used for unknown indication
  17. METFORMIN TAB 500MG ER [Concomitant]
     Indication: Product used for unknown indication
  18. METHOTREXATE [Concomitant]
     Active Substance: METHOTREXATE
     Indication: Product used for unknown indication
  19. MORPHINE SUL TAB [Concomitant]
     Indication: Product used for unknown indication
  20. MORPHINE SUL TAB [Concomitant]
     Indication: Product used for unknown indication
  21. NIFEDIPINE TAB 30MG ER [Concomitant]
     Indication: Product used for unknown indication
  22. NIFEDIPINE TAB 30MG ER [Concomitant]
     Indication: Product used for unknown indication
  23. OLANZAPINE TAB 2.5MG [Concomitant]
     Indication: Product used for unknown indication
  24. ONDANSETRON TAB 4MG ODT [Concomitant]
     Indication: Product used for unknown indication
  25. ONDANSETRON TAB 4MG ODT [Concomitant]
     Indication: Product used for unknown indication
  26. VITAMIN D CAP 1.25MG [Concomitant]
     Indication: Product used for unknown indication
  27. CELEBREX [Concomitant]
     Active Substance: CELECOXIB
     Indication: Product used for unknown indication
  28. Clindamycin capsule 300mg [Concomitant]
     Indication: Product used for unknown indication
  29. Diphenhydramine liquid 12.5/5ml [Concomitant]
     Indication: Product used for unknown indication
  30. ergocalciferol powder 40000unt [Concomitant]
     Indication: Product used for unknown indication
  31. lido/prilocn cream 2.5-2.5% [Concomitant]
     Indication: Product used for unknown indication
  32. lidocaine solution 2% visc [Concomitant]
     Indication: Product used for unknown indication
  33. Maalox max suspension lemon [Concomitant]
     Indication: Product used for unknown indication
  34. Prochlorperazine tablet 10mg [Concomitant]
     Indication: Product used for unknown indication
  35. Tramadol HCL tablet 50mg [Concomitant]
     Indication: Product used for unknown indication

REACTIONS (1)
  - Off label use [Unknown]

NARRATIVE: CASE EVENT DATE: 20240618
